FAERS Safety Report 4854241-X (Version None)
Quarter: 2005Q4

REPORT INFORMATION
  Report Type: 
  Country: None (occurrence: None)
  Receive Date: 20051213
  Receipt Date: 20051213
  Transmission Date: 20060501
  Serious: Yes (Disabling)
  Sender: FDA-Public Use
  Company Number: None

PATIENT
  Sex: Female
  Weight: 68.0396 kg

DRUGS (1)
  1. PAXIL [Suspect]
     Indication: POSTPARTUM DEPRESSION
     Dosage: 20 MG ONCE DAILY ORAL
     Route: 048
     Dates: start: 20040801, end: 20041201

REACTIONS (18)
  - APATHY [None]
  - BALANCE DISORDER [None]
  - CHEST DISCOMFORT [None]
  - CHEST PAIN [None]
  - DISTURBANCE IN ATTENTION [None]
  - DRUG WITHDRAWAL SYNDROME [None]
  - DYSPNOEA [None]
  - FEELING ABNORMAL [None]
  - HYPERSOMNIA [None]
  - INFLUENZA LIKE ILLNESS [None]
  - MALAISE [None]
  - MUSCULAR WEAKNESS [None]
  - ORTHOSTATIC HYPOTENSION [None]
  - PAIN [None]
  - PALPITATIONS [None]
  - POSTPARTUM DEPRESSION [None]
  - STRESS [None]
  - WEIGHT INCREASED [None]
